FAERS Safety Report 7797072-3 (Version None)
Quarter: 2011Q4

REPORT INFORMATION
  Report Type: 
  Country: None (occurrence: None)
  Receive Date: 20111003
  Receipt Date: 20110921
  Transmission Date: 20120403
  Serious: Yes (Other)
  Sender: FDA-Public Use
  Company Number: AUR-APL-2011-05247

PATIENT
  Age: 66 Year
  Sex: Male

DRUGS (2)
  1. ALENDRONATE SODIUM [Suspect]
     Indication: OSTEOPOROSIS
     Dosage: (70 MG), ORAL
     Route: 048
     Dates: start: 20100322, end: 20110531
  2. ADCAL-D3(LEKOVIT CA) [Concomitant]

REACTIONS (1)
  - OESOPHAGEAL CARCINOMA [None]
